FAERS Safety Report 22238019 (Version 1)
Quarter: 2023Q2

REPORT INFORMATION
  Report Type: Spontaneous
  Country: FR (occurrence: FR)
  Receive Date: 20230421
  Receipt Date: 20230421
  Transmission Date: 20230721
  Serious: Yes (Hospitalization)
  Sender: FDA-Public Use
  Company Number: None

PATIENT
  Age: 7 Year
  Sex: Male
  Weight: 25 kg

DRUGS (6)
  1. CLONAZEPAM [Suspect]
     Active Substance: CLONAZEPAM
     Indication: Epilepsy
     Route: 048
     Dates: start: 20220523
  2. FYCOMPA [Suspect]
     Active Substance: PERAMPANEL
     Indication: Epilepsy
     Dosage: 4 ML IN THE EVENING?DAILY DOSE: 2 MILLIGRAM
     Route: 048
  3. INOVELON [Suspect]
     Active Substance: RUFINAMIDE
     Indication: Epilepsy
     Dosage: 12 ML MORNING AND EVENING ?DAILY DOSE: 960 MILLIGRAM
     Route: 048
  4. KEPPRA [Suspect]
     Active Substance: LEVETIRACETAM
     Indication: Epilepsy
     Dosage: 7 ML MORNING AND EVENING?DAILY DOSE: 1400 MILLIGRAM
     Route: 048
  5. ZARONTIN [Suspect]
     Active Substance: ETHOSUXIMIDE
     Indication: Epilepsy
     Dosage: 250 MG/5 ML, 7 ML MORNING AND EVENING?DAILY DOSE: 800 MILLIGRAM
     Route: 048
  6. CHOLECALCIFEROL [Concomitant]
     Active Substance: CHOLECALCIFEROL
     Dosage: 1 AMPOULE OF 100,000 UNITS

REACTIONS (3)
  - Increased bronchial secretion [Not Recovered/Not Resolved]
  - Salivary hypersecretion [Not Recovered/Not Resolved]
  - Drug ineffective [Unknown]

NARRATIVE: CASE EVENT DATE: 20221215
